FAERS Safety Report 16740859 (Version 2)
Quarter: 2019Q3

REPORT INFORMATION
  Report Type: Spontaneous
  Country: LT (occurrence: US)
  Receive Date: 20190826
  Receipt Date: 20190902
  Transmission Date: 20191005
  Serious: Yes (Other)
  Sender: FDA-Public Use
  Company Number: LT-PFIZER INC-2019359786

PATIENT
  Age: 46 Year
  Sex: Male
  Weight: 69.5 kg

DRUGS (8)
  1. DELTYBA [Suspect]
     Active Substance: DELAMANID
     Indication: PULMONARY TUBERCULOSIS
     Dosage: 100 MG, 2X/DAY
     Route: 048
     Dates: start: 20190109, end: 20190207
  2. LINEZOLID. [Suspect]
     Active Substance: LINEZOLID
     Dosage: 600 MG, 1X/DAY
     Route: 048
     Dates: start: 20181219, end: 20190210
  3. LINEZOLID. [Suspect]
     Active Substance: LINEZOLID
     Dosage: 600 MG, 1X/DAY
     Route: 048
     Dates: start: 20190301, end: 20190301
  4. LINEZOLID. [Suspect]
     Active Substance: LINEZOLID
     Dosage: 600 MG, 1X/DAY
     Route: 048
     Dates: start: 20190318, end: 20190527
  5. DELTYBA [Suspect]
     Active Substance: DELAMANID
     Dosage: 100 MG, 2X/DAY
     Route: 048
     Dates: start: 20190218, end: 20190219
  6. DELTYBA [Suspect]
     Active Substance: DELAMANID
     Dosage: 100 MG, 2X/DAY
     Route: 048
     Dates: start: 20190301, end: 20190301
  7. DELTYBA [Suspect]
     Active Substance: DELAMANID
     Dosage: 100 MG, 2X/DAY
     Route: 048
     Dates: start: 20190318
  8. LINEZOLID. [Suspect]
     Active Substance: LINEZOLID
     Dosage: 600 MG, 1X/DAY
     Route: 048
     Dates: start: 20190218, end: 20190219

REACTIONS (7)
  - Off label use [Unknown]
  - Acute kidney injury [Unknown]
  - Anaemia [Recovered/Resolved]
  - Vomiting [Recovered/Resolved]
  - Product use issue [Unknown]
  - Asthenia [Recovered/Resolved]
  - Nausea [Recovered/Resolved]

NARRATIVE: CASE EVENT DATE: 20181219
